FAERS Safety Report 4640172-7 (Version None)
Quarter: 2005Q2

REPORT INFORMATION
  Report Type: 
  Country: None (occurrence: None)
  Receive Date: 20050412
  Receipt Date: 20050404
  Transmission Date: 20051028
  Serious: Yes (Life-Threatening, Other)
  Sender: FDA-Public Use
  Company Number: 2005-00450

PATIENT
  Age: 66 Year
  Sex: Male

DRUGS (1)
  1. IMMUCYST (BCG - IT (CONNAUGHT)) [Suspect]
     Indication: BLADDER CANCER
     Dosage: I.VES., BLADDER
     Dates: start: 20041220

REACTIONS (3)
  - BOVINE TUBERCULOSIS [None]
  - MILIARY PNEUMONIA [None]
  - WEIGHT DECREASED [None]
